FAERS Safety Report 16873398 (Version 6)
Quarter: 2020Q4

REPORT INFORMATION
  Report Type: Spontaneous
  Country: US (occurrence: US)
  Receive Date: 20191001
  Receipt Date: 20201022
  Transmission Date: 20210113
  Serious: Yes (Hospitalization, Other)
  Sender: FDA-Public Use
  Company Number: US-PFIZER INC-2018205085

PATIENT
  Age: 89 Year
  Sex: Female
  Weight: 62.6 kg

DRUGS (7)
  1. LEVEMIR [Concomitant]
     Active Substance: INSULIN DETEMIR
     Indication: DIABETES MELLITUS
     Dosage: 12 IU, 1X/DAY (12 UNITS IN THE MORNING)
  2. LYRICA [Suspect]
     Active Substance: PREGABALIN
     Indication: DIABETIC NEUROPATHY
     Dosage: 300 MG, 2X/DAY (300MG IN THE MORNING AND 300 MG AT NIGHT)
     Route: 048
  3. LYRICA [Suspect]
     Active Substance: PREGABALIN
     Indication: POLYNEUROPATHY
     Dosage: 300 MG, 2X/DAY (300MG IN THE MORNING AND 300 MG AT NIGHT)
     Route: 048
     Dates: start: 20190930
  4. LYRICA [Suspect]
     Active Substance: PREGABALIN
     Indication: TYPE 2 DIABETES MELLITUS
  5. TRULICITY [Concomitant]
     Active Substance: DULAGLUTIDE
     Indication: DIABETES MELLITUS
     Dosage: UNK (SHOT IN HER STOMACH ONCE A WEEK)
  6. JANUVIA [Concomitant]
     Active Substance: SITAGLIPTIN PHOSPHATE
     Indication: DIABETES MELLITUS
     Dosage: UNK
  7. LYRICA [Suspect]
     Active Substance: PREGABALIN
     Indication: NEUROPATHY PERIPHERAL

REACTIONS (7)
  - Illness [Unknown]
  - Visual impairment [Unknown]
  - Expired product administered [Unknown]
  - Withdrawal syndrome [Unknown]
  - Femur fracture [Recovering/Resolving]
  - Fall [Unknown]
  - Body height decreased [Unknown]

NARRATIVE: CASE EVENT DATE: 20190926
